FAERS Safety Report 16108988 (Version 1)
Quarter: 2019Q1

REPORT INFORMATION
  Report Type: Spontaneous
  Country: SI (occurrence: SI)
  Receive Date: 20190323
  Receipt Date: 20190323
  Transmission Date: 20190418
  Serious: Yes (Other)
  Sender: FDA-Public Use
  Company Number: SI-AMGEN-SVNSP2019043293

PATIENT
  Sex: Female

DRUGS (9)
  1. ASPIRIN. [Concomitant]
     Active Substance: ASPIRIN
     Dosage: 100 UNK, AS NECESSARY
  2. CONCOR COR [Concomitant]
     Active Substance: BISOPROLOL FUMARATE
     Dosage: 5 MILLIGRAM, AS NECESSARY
  3. LORISTA [Concomitant]
     Active Substance: LOSARTAN POTASSIUM
     Dosage: 10 MILLIGRAM, AS NECESSARY
  4. REPATHA [Suspect]
     Active Substance: EVOLOCUMAB
     Indication: PRODUCT USED FOR UNKNOWN INDICATION
     Dosage: UNK
     Route: 065
  5. CIPRALEX [Concomitant]
     Active Substance: ESCITALOPRAM OXALATE
     Dosage: 10 MILLIGRAM, AS NECESSARY
  6. LORSILAN [Concomitant]
     Active Substance: LORAZEPAM
     Dosage: UNK UNK, AS NECESSARY
  7. HELEX [Concomitant]
     Active Substance: ALPRAZOLAM
     Dosage: UNK UNK, AS NECESSARY
  8. CONTROLOC [Concomitant]
     Active Substance: PANTOPRAZOLE SODIUM
     Dosage: UNK UNK, AS NECESSARY
  9. PLIVIT D3 [Concomitant]
     Active Substance: CHOLECALCIFEROL
     Dosage: UNK UNK, AS NECESSARY

REACTIONS (6)
  - Hot flush [Unknown]
  - Urinary incontinence [Unknown]
  - Myalgia [Unknown]
  - Syncope [Unknown]
  - Bone pain [Unknown]
  - Headache [Unknown]
